FAERS Safety Report 4354947-5 (Version None)
Quarter: 2004Q2

REPORT INFORMATION
  Report Type: 
  Country: None (occurrence: None)
  Receive Date: 20040504
  Receipt Date: 20040421
  Transmission Date: 20050107
  Serious: Yes (Other)
  Sender: FDA-Public Use
  Company Number: 2003002339

PATIENT
  Age: 70 Year
  Sex: Male
  Weight: 83.9154 kg

DRUGS (5)
  1. LIPITOR [Suspect]
     Indication: HYPERLIPIDAEMIA
     Dosage: 10 MG (DAILY), ORAL
     Route: 048
     Dates: start: 20020901
  2. ROFECOXIB [Concomitant]
  3. PROPAFENONE HYDROCHLORIDE (PROPAFENONE HYDROCHLORIDE) [Concomitant]
  4. METOPROLOL SUCCINATE [Concomitant]
  5. WARFARIN SODIUM (WARFARAIN SODIUM) [Concomitant]

REACTIONS (2)
  - CATARACT [None]
  - DISEASE PROGRESSION [None]
